FAERS Safety Report 14004457 (Version 2)
Quarter: 2017Q4

REPORT INFORMATION
  Report Type: Report from Study
  Country: None (occurrence: CA)
  Receive Date: 20170922
  Receipt Date: 20171117
  Transmission Date: 20180321
  Serious: Yes (Other)
  Sender: FDA-Public Use
  Company Number: CA-ABBVIE-17K-028-2108340-00

PATIENT
  Age: 42 Year
  Sex: Male
  Weight: 85 kg

DRUGS (8)
  1. HUMIRA [Suspect]
     Active Substance: ADALIMUMAB
     Route: 058
     Dates: start: 2017
  2. HUMIRA [Suspect]
     Active Substance: ADALIMUMAB
     Route: 058
     Dates: start: 20140911, end: 20170619
  3. HUMIRA [Suspect]
     Active Substance: ADALIMUMAB
     Route: 058
     Dates: start: 20170619, end: 2017
  4. NAPROXEN. [Concomitant]
     Active Substance: NAPROXEN
     Indication: PSORIATIC ARTHROPATHY
     Dosage: OCCASIONAL
     Route: 048
     Dates: end: 20170901
  5. ACETAMINOPHEN W/OXYCODONE [Concomitant]
     Active Substance: ACETAMINOPHEN\OXYCODONE HYDROCHLORIDE
     Indication: PAIN
     Dosage: 5/25
     Route: 048
  6. HUMIRA [Suspect]
     Active Substance: ADALIMUMAB
     Indication: PSORIATIC ARTHROPATHY
     Route: 058
     Dates: start: 20090707, end: 201402
  7. ENBREL [Suspect]
     Active Substance: ETANERCEPT
     Indication: PSORIATIC ARTHROPATHY
     Route: 058
     Dates: start: 201405, end: 201406
  8. STELARA [Suspect]
     Active Substance: USTEKINUMAB
     Indication: PSORIATIC ARTHROPATHY
     Route: 058
     Dates: start: 201407, end: 201409

REACTIONS (19)
  - Gastric ulcer [Unknown]
  - Bacteraemia [Unknown]
  - Prothrombin time abnormal [Unknown]
  - Antinuclear antibody positive [Unknown]
  - Gastritis [Unknown]
  - Gamma-glutamyltransferase abnormal [Unknown]
  - Iron deficiency anaemia [Recovering/Resolving]
  - Alanine aminotransferase abnormal [Unknown]
  - Blood folate increased [Unknown]
  - Anaemia of chronic disease [Recovering/Resolving]
  - Diverticulum [Unknown]
  - Arthritis [Unknown]
  - Psoriasis [Unknown]
  - Diverticulum intestinal [Unknown]
  - Psoriasis [Unknown]
  - Red blood cell count decreased [Unknown]
  - Intentional product misuse [Unknown]
  - Vitamin B12 increased [Unknown]
  - Mean cell volume decreased [Unknown]

NARRATIVE: CASE EVENT DATE: 201312
